FAERS Safety Report 6089362-X (Version None)
Quarter: 2009Q1

REPORT INFORMATION
  Report Type: 
  Country: None (occurrence: None)
  Receive Date: 20090224
  Receipt Date: 20090212
  Transmission Date: 20090719
  Serious: Yes (Other)
  Sender: FDA-Public Use
  Company Number: JP-JNJFOC-20080805016

PATIENT
  Sex: Male
  Weight: 63 kg

DRUGS (14)
  1. REMICADE [Suspect]
     Route: 042
  2. REMICADE [Suspect]
     Route: 042
  3. REMICADE [Suspect]
     Route: 042
  4. REMICADE [Suspect]
     Route: 042
  5. REMICADE [Suspect]
     Indication: BEHCET'S SYNDROME
     Route: 042
  6. KENACORT [Concomitant]
  7. KENACORT [Concomitant]
  8. KENACORT [Concomitant]
  9. KENACORT [Concomitant]
  10. KENACORT [Concomitant]
     Indication: BEHCET'S SYNDROME
     Dosage: DOSE 20MG/DAY AS NEEDED
  11. RINDERON [Concomitant]
     Dosage: DOSE 20MG/DAY AS NEEDED
  12. RINDERON [Concomitant]
     Dosage: DOSE 20 MG/DAY AS NEEDED
  13. RINDERON [Concomitant]
     Indication: BEHCET'S SYNDROME
     Dosage: DOSE 20MG/DAY AS NEEDED
  14. RHEUMATREX [Concomitant]
     Indication: BEHCET'S SYNDROME
     Route: 048

REACTIONS (1)
  - MACULOPATHY [None]
